FAERS Safety Report 7954327-7 (Version None)
Quarter: 2011Q4

REPORT INFORMATION
  Report Type: 
  Country: None (occurrence: None)
  Receive Date: 20111202
  Receipt Date: 20111118
  Transmission Date: 20120403
  Serious: Yes (Hospitalization)
  Sender: FDA-Public Use
  Company Number: JP-EISAI INC-E7389-01460-SPO-JP

PATIENT
  Sex: Female
  Weight: 45 kg

DRUGS (9)
  1. NEUTROGIN [Concomitant]
     Indication: PROPHYLAXIS
     Route: 058
     Dates: start: 20110812, end: 20110815
  2. SELBEX [Concomitant]
     Indication: PROPHYLAXIS
     Dosage: UNKNOWN
     Route: 048
  3. HALAVEN [Suspect]
     Indication: METASTASES TO BONE
  4. MEROPENEM [Concomitant]
     Indication: PROPHYLAXIS
     Route: 042
     Dates: start: 20110812, end: 20110814
  5. DEXAMETHASONE SODIUM PHOSPHATE [Concomitant]
     Indication: ANTIEMETIC SUPPORTIVE CARE
     Route: 042
     Dates: start: 20110805, end: 20110805
  6. HALAVEN [Suspect]
     Indication: BREAST CANCER RECURRENT
     Route: 042
     Dates: start: 20110805, end: 20110805
  7. LANSOPRAZOLE [Concomitant]
     Dosage: UNKNOWN
     Route: 048
  8. HALAVEN [Suspect]
     Indication: METASTASES TO LYMPH NODES
  9. HALAVEN [Suspect]
     Indication: METASTASES TO LIVER

REACTIONS (8)
  - ALOPECIA [None]
  - FEBRILE NEUTROPENIA [None]
  - DYSGEUSIA [None]
  - ABDOMINAL PAIN [None]
  - DECREASED APPETITE [None]
  - HEPATIC FUNCTION ABNORMAL [None]
  - DEPRESSED LEVEL OF CONSCIOUSNESS [None]
  - LEUKOPENIA [None]
